FAERS Safety Report 9128553 (Version 1)
Quarter: 2013Q1

REPORT INFORMATION
  Report Type: Spontaneous
  Country: NZ (occurrence: NZ)
  Receive Date: 20130125
  Receipt Date: 20130125
  Transmission Date: 20140127
  Serious: Yes (Other)
  Sender: FDA-Public Use
  Company Number: NZ-PFIZER INC-2012281868

PATIENT
  Sex: Female
  Weight: 87 kg

DRUGS (3)
  1. VENLAFAXINE HYDROCHLORIDE [Suspect]
     Indication: DEPRESSION
     Dosage: 75 MG, 2X/DAY
     Dates: start: 200504
  2. BECLOMETHASONE [Concomitant]
     Dosage: UNK
  3. SALBUTAMOL [Concomitant]
     Dosage: UNK

REACTIONS (4)
  - Dry mouth [Unknown]
  - Dental caries [Unknown]
  - Temporomandibular joint syndrome [Unknown]
  - Thirst [Unknown]
